FAERS Safety Report 6545030-9 (Version None)
Quarter: 2010Q1

REPORT INFORMATION
  Report Type: 
  Country: None (occurrence: None)
  Receive Date: 20100121
  Receipt Date: 20100106
  Transmission Date: 20100710
  Serious: Yes (Hospitalization)
  Sender: FDA-Public Use
  Company Number: B0579104A

PATIENT
  Sex: Female
  Weight: 95 kg

DRUGS (4)
  1. ARIXTRA [Suspect]
     Indication: DEEP VEIN THROMBOSIS
     Dosage: 7.5MG PER DAY
     Route: 058
     Dates: start: 20090211, end: 20090304
  2. METFORMIN [Concomitant]
  3. CAPTOPRIL AND HYDROCHLOROTHIAZIDE [Concomitant]
  4. NICARDIPINE HYDROCHLORIDE [Concomitant]

REACTIONS (6)
  - BLOOD BLISTER [None]
  - DERMATITIS BULLOUS [None]
  - SCAB [None]
  - SKIN HAEMORRHAGE [None]
  - SKIN LESION [None]
  - TOXIC SKIN ERUPTION [None]
